FAERS Safety Report 8999871 (Version 1)
Quarter: 2013Q1

REPORT INFORMATION
  Report Type: Report from Study
  Country: CA (occurrence: CA)
  Receive Date: 20130102
  Receipt Date: 20130102
  Transmission Date: 20140127
  Serious: Yes (Hospitalization)
  Sender: FDA-Public Use
  Company Number: CA-JNJFOC-20121207303

PATIENT
  Age: 69 None
  Sex: Male
  Weight: 79.5 kg

DRUGS (16)
  1. REMICADE [Suspect]
     Indication: CROHN^S DISEASE
     Route: 042
     Dates: start: 20061218
  2. REMICADE [Suspect]
     Indication: CROHN^S DISEASE
     Dosage: 44TH INFUSION
     Route: 042
     Dates: start: 20121220
  3. SOLUCORTEF [Concomitant]
     Indication: PREMEDICATION
     Route: 065
     Dates: start: 20121220
  4. OXYCODONE [Concomitant]
     Route: 065
  5. VITAMIN   B12 [Concomitant]
     Route: 065
  6. TESTOSTERONE [Concomitant]
     Route: 065
  7. DILANTIN [Concomitant]
     Route: 065
  8. BUSCOPAN [Concomitant]
     Route: 065
  9. ASA [Concomitant]
     Route: 065
  10. METOPROLOL [Concomitant]
     Route: 065
  11. EFFEXOR [Concomitant]
     Route: 065
  12. CALCIUM [Concomitant]
     Route: 065
  13. SIMVASTATIN [Concomitant]
     Route: 065
  14. NORVASC [Concomitant]
     Route: 065
  15. CALCITRIOL [Concomitant]
     Route: 065
  16. FENTANYL [Concomitant]
     Route: 062

REACTIONS (2)
  - Diverticulitis [Recovering/Resolving]
  - Convulsion [Recovering/Resolving]
